FAERS Safety Report 5427742-3 (Version None)
Quarter: 2007Q3

REPORT INFORMATION
  Report Type: 
  Country: None (occurrence: None)
  Receive Date: 20070828
  Receipt Date: 20070828
  Transmission Date: 20080115
  Serious: Yes (Hospitalization)
  Sender: FDA-Public Use
  Company Number: None

PATIENT
  Age: 64 Year
  Sex: Male
  Weight: 89 kg

DRUGS (3)
  1. ACITRETIN [Suspect]
     Indication: WEGENER'S GRANULOMATOSIS
     Dosage: 50 MG 1 PER DAY ORAL
     Route: 048
     Dates: start: 20060615, end: 20061215
  2. CASPOFUNGIN (CASPOFUNGIN ACETATE) [Concomitant]
  3. NEORECORMON (EPOETIN BETA) [Concomitant]

REACTIONS (3)
  - HYPOALBUMINAEMIA [None]
  - LIVER FUNCTION TEST ABNORMAL [None]
  - LOWER RESPIRATORY TRACT INFECTION [None]
